FAERS Safety Report 25234115 (Version 1)
Quarter: 2025Q2

REPORT INFORMATION
  Report Type: Spontaneous
  Country: US (occurrence: US)
  Receive Date: 20250424
  Receipt Date: 20250424
  Transmission Date: 20250716
  Serious: No
  Sender: ROCHE
  Company Number: US-ROCHE-10000259301

PATIENT
  Age: 72 Year
  Sex: Female
  Weight: 86.64 kg

DRUGS (7)
  1. XOLAIR [Suspect]
     Active Substance: OMALIZUMAB
     Indication: Hypersensitivity
     Route: 058
     Dates: start: 202412
  2. XOLAIR [Suspect]
     Active Substance: OMALIZUMAB
     Indication: Food allergy
  3. XOLAIR [Suspect]
     Active Substance: OMALIZUMAB
     Indication: Urticaria
  4. XOLAIR [Suspect]
     Active Substance: OMALIZUMAB
     Indication: Hypersensitivity
     Route: 058
     Dates: start: 202504
  5. XOLAIR [Suspect]
     Active Substance: OMALIZUMAB
     Indication: Food allergy
  6. XOLAIR [Suspect]
     Active Substance: OMALIZUMAB
     Indication: Urticaria
  7. BENADRYL [Concomitant]
     Active Substance: DIPHENHYDRAMINE HYDROCHLORIDE
     Dosage: ON DAY OF XOLAIR INJECTION
     Route: 048
     Dates: start: 202412

REACTIONS (4)
  - Product dose omission issue [Unknown]
  - Accidental exposure to product [Unknown]
  - Illness [Unknown]
  - Device defective [Unknown]

NARRATIVE: CASE EVENT DATE: 20250414
